FAERS Safety Report 8542324-2 (Version None)
Quarter: 2012Q3

REPORT INFORMATION
  Report Type: 
  Country: None (occurrence: None)
  Receive Date: 20120726
  Receipt Date: 20120127
  Transmission Date: 20120928
  Serious: No
  Sender: FDA-Public Use
  Company Number: US-ASTRAZENECA-2011SE52446

PATIENT
  Age: 63 Year
  Sex: Female
  Weight: 72.3 kg

DRUGS (6)
  1. WELLBUTRIN [Suspect]
     Route: 065
  2. SEROQUEL [Suspect]
     Route: 048
  3. BENZTROPINE MESYLATE [Concomitant]
     Route: 048
  4. LAMOTRIGINE [Concomitant]
     Route: 048
  5. SEROQUEL [Suspect]
     Indication: BIPOLAR DISORDER
     Route: 048
  6. HALDOL [Concomitant]
     Route: 048

REACTIONS (5)
  - ANXIETY [None]
  - TREMOR [None]
  - AMNESIA [None]
  - MALAISE [None]
  - CONFUSIONAL STATE [None]
